FAERS Safety Report 17373333 (Version 2)
Quarter: 2022Q1

REPORT INFORMATION
  Report Type: Report from Study
  Country: EG (occurrence: EG)
  Receive Date: 20200205
  Receipt Date: 20220318
  Transmission Date: 20220423
  Serious: Yes (Other)
  Sender: FDA-Public Use
  Company Number: EG-NOVARTISPH-NVSC2020EG024294

PATIENT
  Age: 44 Year
  Sex: Male

DRUGS (2)
  1. GLIVEC [Suspect]
     Active Substance: IMATINIB MESYLATE
     Indication: Chronic myeloid leukaemia
     Dosage: 4 DF, QD (100 MG)
     Route: 048
     Dates: start: 2012, end: 2019
  2. TASIGNA [Suspect]
     Active Substance: NILOTINIB
     Indication: Chronic myeloid leukaemia
     Dosage: 3 DF, QD (200 MG) (600 MG QD), 3 MONTHS AGO
     Route: 048
     Dates: start: 2019

REACTIONS (4)
  - Platelet count abnormal [Not Recovered/Not Resolved]
  - Hepatic function abnormal [Recovering/Resolving]
  - Cytogenetic analysis abnormal [Unknown]
  - Drug ineffective [Not Recovered/Not Resolved]

NARRATIVE: CASE EVENT DATE: 20190301
